FAERS Safety Report 13407891 (Version 2)
Quarter: 2017Q2

REPORT INFORMATION
  Report Type: Spontaneous
  Country: JP (occurrence: JP)
  Receive Date: 20170406
  Receipt Date: 20170427
  Transmission Date: 20170830
  Serious: Yes (Other)
  Sender: FDA-Public Use
  Company Number: JP-ACCORD-049849

PATIENT
  Age: 87 Year
  Sex: Male

DRUGS (7)
  1. ESOMEPRAZOLE/ESOMEPRAZOLE MAGNESIUM/ESOMEPRAZOLE SODIUM [Suspect]
     Active Substance: ESOMEPRAZOLE
     Indication: HICCUPS
     Dosage: FREQUENT USE
  2. HERBAL EXTRACT NOS [Concomitant]
     Active Substance: HERBALS
     Indication: HICCUPS
  3. BISOPROLOL [Concomitant]
     Active Substance: BISOPROLOL
     Indication: HYPERTENSION
  4. HERBAL EXTRACT NOS [Concomitant]
     Active Substance: HERBALS
     Indication: HICCUPS
  5. METOCLOPRAMIDE. [Concomitant]
     Active Substance: METOCLOPRAMIDE
     Indication: HICCUPS
  6. DIMETICONE [Concomitant]
     Active Substance: DIMETHICONE
     Indication: HICCUPS
  7. AMLODIPINE [Concomitant]
     Active Substance: AMLODIPINE BESYLATE
     Indication: HYPERTENSION
     Dosage: CHRONIC USE

REACTIONS (1)
  - Oesophageal candidiasis [Recovered/Resolved]

NARRATIVE: CASE EVENT DATE: 201306
